FAERS Safety Report 7058103-1 (Version None)
Quarter: 2010Q4

REPORT INFORMATION
  Report Type: 
  Country: None (occurrence: None)
  Receive Date: 20101022
  Receipt Date: 20101011
  Transmission Date: 20110411
  Serious: Yes (Hospitalization)
  Sender: FDA-Public Use
  Company Number: GB-PFIZER INC-2009307185

PATIENT
  Age: 77 Year
  Sex: Male
  Weight: 174.8 kg

DRUGS (5)
  1. PREDNISONE [Suspect]
     Indication: PROSTATE CANCER
     Dosage: 5 MG, 2X/DAY
     Route: 048
     Dates: start: 20091008
  2. BLINDED *NO SUBJECT DRUG [Suspect]
     Indication: PROSTATE CANCER
     Dosage: 1X/DAY
     Route: 048
     Dates: start: 20091008, end: 20091211
  3. BLINDED *PLACEBO [Suspect]
     Indication: PROSTATE CANCER
     Dosage: 1X/DAY
     Route: 048
     Dates: start: 20091008, end: 20091211
  4. SUNITINIB MALATE [Suspect]
     Indication: PROSTATE CANCER
     Dosage: 1X/DAY
     Route: 048
     Dates: start: 20091008, end: 20091211
  5. DEXAMETHASONE [Concomitant]
     Indication: PROSTATE CANCER
     Dosage: 0.5 MG, 1X/DAY
     Route: 048
     Dates: start: 20061001, end: 20091008

REACTIONS (1)
  - URINARY TRACT INFECTION [None]
